FAERS Safety Report 24525673 (Version 2)
Quarter: 2024Q4

REPORT INFORMATION
  Report Type: Spontaneous
  Country: AU (occurrence: AU)
  Receive Date: 20241020
  Receipt Date: 20241024
  Transmission Date: 20250114
  Serious: Yes (Hospitalization, Other)
  Sender: Kenvue
  Company Number: AU-KENVUE-20241000002

PATIENT

DRUGS (32)
  1. ACETAMINOPHEN [Suspect]
     Active Substance: ACETAMINOPHEN
     Indication: Product used for unknown indication
     Dosage: 4 GRAM, ONCE A DAY
     Route: 065
  2. CLOZAPINE [Suspect]
     Active Substance: CLOZAPINE
     Indication: Schizoaffective disorder
     Dosage: UNK
     Route: 065
  3. CLOZAPINE [Suspect]
     Active Substance: CLOZAPINE
     Indication: Schizophrenia
     Dosage: 12.5 MILLIGRAM
     Route: 065
  4. CLOZAPINE [Suspect]
     Active Substance: CLOZAPINE
     Dosage: 125 MILLIGRAM
     Route: 065
  5. CLOZAPINE [Suspect]
     Active Substance: CLOZAPINE
     Dosage: 75 MILLIGRAM
     Route: 065
  6. CLOZAPINE [Suspect]
     Active Substance: CLOZAPINE
     Dosage: 200 MILLIGRAM
     Route: 065
  7. CLOZAPINE [Suspect]
     Active Substance: CLOZAPINE
     Dosage: 225 MILLIGRAM
     Route: 065
  8. CLOZAPINE [Suspect]
     Active Substance: CLOZAPINE
     Dosage: 250 MILLIGRAM
     Route: 065
  9. CLOZAPINE [Suspect]
     Active Substance: CLOZAPINE
     Dosage: 325 MILLIGRAM
     Route: 065
     Dates: start: 20091121
  10. CLOZAPINE [Suspect]
     Active Substance: CLOZAPINE
     Dosage: 350 MILLIGRAM
     Route: 065
  11. CLOZAPINE [Suspect]
     Active Substance: CLOZAPINE
     Dosage: 400 MILLIGRAM
     Route: 065
  12. CLOZAPINE [Suspect]
     Active Substance: CLOZAPINE
     Dosage: 425 MILLIGRAM QN (NIGHT)
     Route: 065
     Dates: start: 1990
  13. CLOZAPINE [Suspect]
     Active Substance: CLOZAPINE
     Dosage: 450 MILLIGRAM
     Route: 065
  14. CLOZAPINE [Suspect]
     Active Substance: CLOZAPINE
     Dosage: UNK
     Route: 065
  15. DOCUSATE SODIUM\SENNOSIDES A AND B [Suspect]
     Active Substance: DOCUSATE SODIUM\SENNOSIDES A AND B
     Indication: Product used for unknown indication
     Dosage: UNK UNK, ONCE A DAY
     Route: 065
  16. CRESTOR [Suspect]
     Active Substance: ROSUVASTATIN CALCIUM
     Indication: Product used for unknown indication
     Dosage: 20 MILLIGRAM QN (EVERY NIGHT)
     Route: 065
  17. ASPIRIN [Suspect]
     Active Substance: ASPIRIN
     Indication: Product used for unknown indication
     Dosage: 100 MILLIGRAM, ONCE A DAY
     Route: 065
  18. ATORVASTATIN [Suspect]
     Active Substance: ATORVASTATIN
     Indication: Product used for unknown indication
     Dosage: 80 MILLIGRAM, ONCE A DAY (MORNING)
     Route: 065
  19. ATROPINE [Suspect]
     Active Substance: ATROPINE
     Indication: Product used for unknown indication
     Dosage: 1 PERCENT, ONCE A DAY
     Route: 048
  20. DICLOFENAC [Suspect]
     Active Substance: DICLOFENAC
     Indication: Product used for unknown indication
     Dosage: 1 PERCENT, TWICE A DAY
     Route: 061
  21. GLICLAZIDE [Suspect]
     Active Substance: GLICLAZIDE
     Indication: Product used for unknown indication
     Dosage: 60 MILLIGRAM, ONCE A DAY
     Route: 065
  22. LITHIUM [Suspect]
     Active Substance: LITHIUM
     Indication: Prophylaxis
     Dosage: 500 MILLIGRAM ~QN (EVERY NIGHT)
     Route: 065
  23. LITHIUM [Suspect]
     Active Substance: LITHIUM
     Indication: Mania
     Dosage: 500 MILLIGRAM, ONCE A DAY
     Route: 065
  24. LITHIUM [Suspect]
     Active Substance: LITHIUM
     Dosage: 1000 MILLIGRAM QN (EVERY NIGHT)
     Route: 065
  25. LITHIUM [Suspect]
     Active Substance: LITHIUM
     Dosage: 1500 MILLIGRAM QN (EVERY NIGHT)
     Route: 065
  26. METFORMIN HYDROCHLORIDE [Suspect]
     Active Substance: METFORMIN HYDROCHLORIDE
     Indication: Product used for unknown indication
     Dosage: 1.5 GRAM, ONCE A DAY
     Route: 065
  27. OLANZAPINE [Suspect]
     Active Substance: OLANZAPINE
     Indication: Product used for unknown indication
     Dosage: 10 MILLIGRAM (2 WEEKS BLISTER)
     Route: 030
  28. PERINDOPRIL [Suspect]
     Active Substance: PERINDOPRIL
     Indication: Product used for unknown indication
     Dosage: 5 MILLIGRAM, ONCE A DAY QN (NIGHT, 2 WEEKS BLISTER)
     Route: 065
  29. PREGABALIN [Suspect]
     Active Substance: PREGABALIN
     Indication: Product used for unknown indication
     Dosage: 50 MILLIGRAM, TWICE A DAY
     Route: 065
  30. QUETIAPINE FUMARATE [Suspect]
     Active Substance: QUETIAPINE FUMARATE
     Indication: Product used for unknown indication
     Route: 065
  31. VALPROATE SODIUM [Suspect]
     Active Substance: VALPROATE SODIUM
     Indication: Product used for unknown indication
     Dosage: UNK, ONCE A DAY
     Route: 048
  32. TEMAZEPAM [Suspect]
     Active Substance: TEMAZEPAM
     Indication: Product used for unknown indication
     Dosage: 10 MILLIGRAM QN (NIGHT)
     Route: 065

REACTIONS (40)
  - Rebound psychosis [Unknown]
  - Cardiomyopathy [Unknown]
  - Bipolar I disorder [Unknown]
  - Myocarditis [Unknown]
  - Cerebral infarction [Unknown]
  - Schizoaffective disorder [Not Recovered/Not Resolved]
  - Schizophrenia [Not Recovered/Not Resolved]
  - Delirium [Unknown]
  - Consciousness fluctuating [Unknown]
  - Euphoric mood [Unknown]
  - Abdominal pain [Not Recovered/Not Resolved]
  - Anosognosia [Recovering/Resolving]
  - Anxiety [Not Recovered/Not Resolved]
  - Arthralgia [Unknown]
  - Blood creatine phosphokinase increased [Recovering/Resolving]
  - Condition aggravated [Unknown]
  - Constipation [Unknown]
  - Hirsutism [Unknown]
  - Fall [Not Recovered/Not Resolved]
  - Hypercalcaemia [Unknown]
  - Fatigue [Unknown]
  - Hyperthermia [Unknown]
  - Hypophagia [Unknown]
  - Judgement impaired [Not Recovered/Not Resolved]
  - Hypophagia [Unknown]
  - Memory impairment [Recovering/Resolving]
  - Mental disorder [Unknown]
  - Muscle rigidity [Unknown]
  - Muscle injury [Unknown]
  - Obsessive-compulsive disorder [Unknown]
  - Pain in extremity [Unknown]
  - Osteoporosis [Unknown]
  - Sleep disorder [Recovering/Resolving]
  - Pressure of speech [Not Recovered/Not Resolved]
  - Somatic symptom disorder [Not Recovered/Not Resolved]
  - Vitamin D deficiency [Unknown]
  - Somnolence [Unknown]
  - Troponin increased [Unknown]
  - Toxicity to various agents [Unknown]
  - Drug ineffective [Unknown]
